FAERS Safety Report 6942756-X (Version None)
Quarter: 2010Q3

REPORT INFORMATION
  Report Type: 
  Country: None (occurrence: None)
  Receive Date: 20100826
  Receipt Date: 20100816
  Transmission Date: 20110219
  Serious: Yes (Hospitalization)
  Sender: FDA-Public Use
  Company Number: US-JNJFOC-20100805539

PATIENT
  Age: 54 Year
  Sex: Female
  Weight: 65 kg

DRUGS (11)
  1. KETOCONAZOLE [Suspect]
     Indication: NEOPLASM
     Route: 048
  2. ALL OTHER THERAPEUTIC PRODUCT [Suspect]
     Indication: NEOPLASM
     Route: 048
  3. FENTANYL CITRATE [Suspect]
     Indication: CANCER PAIN
     Route: 062
  4. DOCUSATE SODIUM [Suspect]
     Indication: CONSTIPATION
     Route: 065
  5. HYDROCODONE BITARTRATE [Suspect]
     Indication: CANCER PAIN
     Route: 065
  6. ONDANSETRON [Suspect]
     Indication: NAUSEA
     Route: 065
  7. SENNA ALEXANDRINA [Suspect]
     Indication: CONSTIPATION
     Route: 065
  8. MULTI-VITAMINS [Concomitant]
     Indication: NUTRITIONAL SUPPORT
     Route: 065
  9. IBUPROFEN [Concomitant]
     Indication: CANCER PAIN
     Route: 065
  10. METOPROLOL [Concomitant]
     Indication: HYPERTENSION
     Route: 065
  11. RANITIDINE [Concomitant]
     Indication: GASTROOESOPHAGEAL REFLUX DISEASE
     Route: 065

REACTIONS (6)
  - ABDOMINAL PAIN [None]
  - BACK PAIN [None]
  - CONSTIPATION [None]
  - DEHYDRATION [None]
  - NAUSEA [None]
  - VOMITING [None]
